FAERS Safety Report 21507958 (Version 1)
Quarter: 2022Q4

REPORT INFORMATION
  Report Type: Spontaneous
  Country: US (occurrence: None)
  Receive Date: 20221025
  Receipt Date: 20221025
  Transmission Date: 20230113
  Serious: Yes (Hospitalization)
  Sender: FDA-Public Use
  Company Number: None

PATIENT
  Sex: Female
  Weight: 77.4 kg

DRUGS (14)
  1. XELJANZ XR [Suspect]
     Active Substance: TOFACITINIB CITRATE
     Indication: Rheumatoid arthritis
     Dosage: FREQUENCY : DAILY;?
     Route: 002
     Dates: start: 20220602, end: 20220708
  2. GABAPENTIN [Concomitant]
     Active Substance: GABAPENTIN
  3. DOLOGESIC [Concomitant]
     Active Substance: ACETAMINOPHEN\ALCOHOL\PHENYLTOLOXAMINE CITRATE
  4. DICLOFENAC [Concomitant]
     Active Substance: DICLOFENAC
  5. ENALAPRIL [Concomitant]
     Active Substance: ENALAPRIL
  6. METFORMIN [Concomitant]
     Active Substance: METFORMIN HYDROCHLORIDE
  7. BUSPIRONE [Concomitant]
     Active Substance: BUSPIRONE HYDROCHLORIDE
  8. TEMAZEPAM [Concomitant]
     Active Substance: TEMAZEPAM
  9. QUETIAPINE [Concomitant]
     Active Substance: QUETIAPINE
  10. SIMVASTATIN [Concomitant]
     Active Substance: SIMVASTATIN
  11. FLUOXETINE [Concomitant]
     Active Substance: FLUOXETINE HYDROCHLORIDE
  12. OMEGA 3 [Concomitant]
     Active Substance: CAPSAICIN
  13. VITAMIN D3 [Concomitant]
     Active Substance: CHOLECALCIFEROL
  14. CINNAMON [Concomitant]
     Active Substance: CINNAMON

REACTIONS (2)
  - Colitis [None]
  - Therapy interrupted [None]
